FAERS Safety Report 18650761 (Version 1)
Quarter: 2020Q4

REPORT INFORMATION
  Report Type: Spontaneous
  Country: DE (occurrence: DE)
  Receive Date: 20201223
  Receipt Date: 20201223
  Transmission Date: 20210114
  Serious: Yes (Other)
  Sender: FDA-Public Use
  Company Number: DE-AUROBINDO-AUR-APL-2020-061882

PATIENT
  Age: 1 Day
  Sex: Female
  Weight: 2.46 kg

DRUGS (2)
  1. VENLAFAXINE [Suspect]
     Active Substance: VENLAFAXINE HYDROCHLORIDE
     Indication: PRODUCT USED FOR UNKNOWN INDICATION
     Dosage: UNK, 225 [MG/D (BIS 150 MG/D)]
     Route: 064
     Dates: start: 20190223
  2. OLANZAPINE. [Suspect]
     Active Substance: OLANZAPINE
     Indication: PRODUCT USED FOR UNKNOWN INDICATION
     Dosage: 5 MILLIGRAM, ONCE A DAY
     Route: 064
     Dates: start: 20190223

REACTIONS (3)
  - Foetal exposure during pregnancy [Unknown]
  - Microcephaly [Unknown]
  - Small for dates baby [Unknown]

NARRATIVE: CASE EVENT DATE: 20191118
